FAERS Safety Report 13743519 (Version 28)
Quarter: 2018Q2

REPORT INFORMATION
  Report Type: Report from Study
  Country: DE (occurrence: DE)
  Receive Date: 20170711
  Receipt Date: 20180607
  Transmission Date: 20180711
  Serious: Yes (Hospitalization, Other)
  Sender: FDA-Public Use
  Company Number: PHHY2017DE065342

PATIENT
  Age: 76 Year
  Sex: Female
  Weight: 57 kg

DRUGS (42)
  1. TAFINLAR [Suspect]
     Active Substance: DABRAFENIB MESYLATE
     Dosage: 75 MG, BID
     Route: 048
     Dates: start: 20170803, end: 20170925
  2. TRAMETINIB [Suspect]
     Active Substance: TRAMETINIB
     Indication: METASTATIC MALIGNANT MELANOMA
     Dosage: 2 MG, QD
     Route: 048
     Dates: start: 20170328, end: 20170630
  3. TRAMETINIB [Suspect]
     Active Substance: TRAMETINIB
     Dosage: 2 MG, QD
     Route: 048
     Dates: start: 20170803, end: 20171001
  4. ZOMETA [Concomitant]
     Active Substance: ZOLEDRONIC ACID
     Indication: MALIGNANT MELANOMA
     Dosage: 4 MG, QMO
     Route: 042
     Dates: start: 20170404, end: 20180318
  5. HEPARIN [Concomitant]
     Active Substance: HEPARIN SODIUM
     Indication: MALIGNANT MELANOMA
     Dosage: 5000 U, QD
     Route: 058
     Dates: start: 20170703, end: 20170703
  6. HEPARIN [Concomitant]
     Active Substance: HEPARIN SODIUM
     Dosage: 5000 U, BID
     Route: 058
     Dates: start: 20170704, end: 20170801
  7. JONOSTERIL [Concomitant]
     Active Substance: CALCIUM ACETATE\MAGNESIUM ACETATE\POTASSIUM ACETATE\SODIUM ACETATE\SODIUM CHLORIDE
     Indication: ACUTE KIDNEY INJURY
     Dosage: 500 ML, QD
     Route: 042
     Dates: start: 20170709, end: 20170710
  8. FRAXIPARIN [Concomitant]
     Active Substance: NADROPARIN CALCIUM
     Indication: PRODUCT USED FOR UNKNOWN INDICATION
     Dosage: 2850 IU, QD
     Route: 058
     Dates: start: 20170417, end: 20180424
  9. TAFINLAR [Suspect]
     Active Substance: DABRAFENIB MESYLATE
     Indication: METASTATIC MALIGNANT MELANOMA
     Dosage: 150 MG, BID
     Route: 048
     Dates: start: 20170328, end: 20170630
  10. TAFINLAR [Suspect]
     Active Substance: DABRAFENIB MESYLATE
     Dosage: 75 MG, BID
     Route: 048
     Dates: start: 20171020, end: 20171109
  11. HEPARIN [Suspect]
     Active Substance: HEPARIN SODIUM
     Indication: MALIGNANT MELANOMA
     Dosage: 2 MG, QD
     Route: 048
     Dates: start: 20171006, end: 20171012
  12. MCP [Concomitant]
     Active Substance: METOCLOPRAMIDE HYDROCHLORIDE
     Indication: MALIGNANT MELANOMA
     Dosage: 20 GTT, AS NEEDED UPTO TID
     Route: 048
     Dates: start: 20170424
  13. ROCEPHIN [Concomitant]
     Active Substance: CEFTRIAXONE SODIUM
     Indication: PRODUCT USED FOR UNKNOWN INDICATION
     Dosage: 2 G, QD
     Route: 042
     Dates: start: 20180321, end: 20180329
  14. TAFINLAR [Suspect]
     Active Substance: DABRAFENIB MESYLATE
     Dosage: 150 MG, BID
     Route: 048
     Dates: start: 20170926, end: 20170927
  15. TAFINLAR [Suspect]
     Active Substance: DABRAFENIB MESYLATE
     Dosage: 75 MG, BID
     Route: 048
     Dates: start: 20171006, end: 20171012
  16. TRAMETINIB [Suspect]
     Active Substance: TRAMETINIB
     Dosage: 2 MG, QD
     Route: 048
     Dates: start: 20171006, end: 20171012
  17. TRAMETINIB [Suspect]
     Active Substance: TRAMETINIB
     Dosage: 2 MG, QD
     Route: 048
     Dates: start: 20171020, end: 20171109
  18. TRAMETINIB [Suspect]
     Active Substance: TRAMETINIB
     Dosage: 2 MG, QD
     Route: 048
     Dates: start: 20180424
  19. AMOXICILLIN. [Suspect]
     Active Substance: AMOXICILLIN
     Indication: PRODUCT USED FOR UNKNOWN INDICATION
     Dosage: 875 MG, BID
     Route: 048
     Dates: start: 20180306, end: 20180320
  20. VITAMIN D3 [Concomitant]
     Active Substance: CHOLECALCIFEROL
     Indication: MALIGNANT MELANOMA
     Dosage: 400 IU, QD
     Route: 048
  21. JONOSTERIL [Concomitant]
     Active Substance: CALCIUM ACETATE\MAGNESIUM ACETATE\POTASSIUM ACETATE\SODIUM ACETATE\SODIUM CHLORIDE
     Indication: HYPONATRAEMIA
     Dosage: 1000 ML, QD
     Route: 042
     Dates: start: 20170703, end: 20170708
  22. PANTOPRAZOL [Concomitant]
     Active Substance: PANTOPRAZOLE SODIUM
     Indication: PRODUCT USED FOR UNKNOWN INDICATION
     Dosage: 20 MG, QD
     Route: 048
     Dates: start: 20180320
  23. FURESIS [Concomitant]
     Active Substance: FUROSEMIDE
     Indication: PRODUCT USED FOR UNKNOWN INDICATION
     Dosage: 40 MG, QD
     Route: 042
     Dates: start: 20180321, end: 20180322
  24. TAFINLAR [Suspect]
     Active Substance: DABRAFENIB MESYLATE
     Dosage: 75 MG, BID
     Route: 048
     Dates: start: 20170928, end: 20171001
  25. TAFINLAR [Suspect]
     Active Substance: DABRAFENIB MESYLATE
     Dosage: 150 MG, BID
     Route: 048
     Dates: start: 20180424
  26. TRAMETINIB [Suspect]
     Active Substance: TRAMETINIB
     Dosage: 2 MG, QD
     Route: 048
     Dates: start: 20180228, end: 20180318
  27. CIPROFLOXACIN. [Concomitant]
     Active Substance: CIPROFLOXACIN
     Indication: PRODUCT USED FOR UNKNOWN INDICATION
     Dosage: 100 MG, QD
     Route: 048
     Dates: start: 20171013, end: 20171018
  28. TAFINLAR [Suspect]
     Active Substance: DABRAFENIB MESYLATE
     Dosage: 150 MG, BID
     Route: 048
     Dates: start: 20180228, end: 20180318
  29. RAMILICH [Concomitant]
     Active Substance: RAMIPRIL
     Indication: HYPERTENSION
     Dosage: 10 MG, QD
     Route: 048
  30. TILIDINE [Concomitant]
     Active Substance: TILIDINE
     Indication: MALIGNANT MELANOMA
     Dosage: 50 MG, BID (50/4)
     Route: 048
     Dates: start: 20170802
  31. NOVAMINSULFON [Concomitant]
     Active Substance: METAMIZOLE
     Indication: PRODUCT USED FOR UNKNOWN INDICATION
     Dosage: 1000 MG, BID
     Route: 042
     Dates: start: 20180320, end: 20180321
  32. TAFINLAR [Suspect]
     Active Substance: DABRAFENIB MESYLATE
     Dosage: 150 MG, BID
     Route: 048
     Dates: start: 20171121, end: 20180217
  33. CALCIUM [Concomitant]
     Active Substance: CALCIUM
     Indication: MALIGNANT MELANOMA
     Dosage: 500 MG, QD
     Route: 048
  34. FERINJECT [Concomitant]
     Active Substance: FERRIC CARBOXYMALTOSE
     Indication: PRODUCT USED FOR UNKNOWN INDICATION
     Dosage: 50 MG, QD
     Route: 042
     Dates: start: 20171017, end: 20171017
  35. JONOSTERIL [Concomitant]
     Active Substance: CALCIUM ACETATE\MAGNESIUM ACETATE\POTASSIUM ACETATE\SODIUM ACETATE\SODIUM CHLORIDE
     Dosage: 1000 ML, QD
     Route: 042
     Dates: start: 20180323, end: 20180326
  36. JONOSTERIL [Concomitant]
     Active Substance: CALCIUM ACETATE\MAGNESIUM ACETATE\POTASSIUM ACETATE\SODIUM ACETATE\SODIUM CHLORIDE
     Dosage: 500 ML, QD
     Route: 042
     Dates: start: 20180327, end: 20180327
  37. JONOSTERIL [Concomitant]
     Active Substance: CALCIUM ACETATE\MAGNESIUM ACETATE\POTASSIUM ACETATE\SODIUM ACETATE\SODIUM CHLORIDE
     Dosage: 1000 ML, QD
     Route: 042
     Dates: start: 20180417, end: 20180420
  38. TRAMETINIB [Suspect]
     Active Substance: TRAMETINIB
     Dosage: 2 MG, QD
     Route: 048
     Dates: start: 20171121, end: 20180217
  39. CLAVULANIC ACID [Suspect]
     Active Substance: CLAVULANIC ACID
     Indication: PRODUCT USED FOR UNKNOWN INDICATION
     Dosage: 125 MG, BID
     Route: 048
     Dates: start: 20180306, end: 20180320
  40. JONOSTERIL [Concomitant]
     Active Substance: CALCIUM ACETATE\MAGNESIUM ACETATE\POTASSIUM ACETATE\SODIUM ACETATE\SODIUM CHLORIDE
     Indication: DIARRHOEA
     Dosage: 2000 ML, QD
     Route: 042
  41. JONOSTERIL [Concomitant]
     Active Substance: CALCIUM ACETATE\MAGNESIUM ACETATE\POTASSIUM ACETATE\SODIUM ACETATE\SODIUM CHLORIDE
     Dosage: 1000 ML, BID
     Route: 042
     Dates: start: 20180320, end: 20180322
  42. METOCLOPRAMIDE. [Concomitant]
     Active Substance: METOCLOPRAMIDE
     Indication: PRODUCT USED FOR UNKNOWN INDICATION
     Dosage: 10 MG, BID
     Route: 042
     Dates: start: 20180320, end: 20180322

REACTIONS (41)
  - Acute kidney injury [Recovered/Resolved with Sequelae]
  - Thrombocytopenia [Recovered/Resolved]
  - Pneumonia [Recovering/Resolving]
  - Vomiting [Recovered/Resolved]
  - Blood creatine phosphokinase increased [Recovered/Resolved]
  - Gamma-glutamyltransferase increased [Recovered/Resolved]
  - Hypokalaemia [Recovered/Resolved]
  - Influenza like illness [Recovered/Resolved]
  - Hypoalbuminaemia [Not Recovered/Not Resolved]
  - Anaemia [Recovered/Resolved with Sequelae]
  - Anaemia [Not Recovered/Not Resolved]
  - Thrombocytopenia [Recovered/Resolved]
  - Lymphopenia [Unknown]
  - Nausea [Recovering/Resolving]
  - Blood creatine phosphokinase increased [Recovering/Resolving]
  - Rash maculo-papular [Recovering/Resolving]
  - Hyponatraemia [Recovered/Resolved]
  - Gamma-glutamyltransferase increased [Unknown]
  - Alanine aminotransferase increased [Recovered/Resolved]
  - Diarrhoea [Recovered/Resolved]
  - Hypocalcaemia [Recovered/Resolved]
  - Dehydration [Recovered/Resolved]
  - Leukopenia [Not Recovered/Not Resolved]
  - Blood creatinine increased [Recovered/Resolved]
  - Haematuria [Not Recovered/Not Resolved]
  - Hyponatraemia [Not Recovered/Not Resolved]
  - Acute kidney injury [Recovered/Resolved]
  - Thrombocytopenia [Recovered/Resolved]
  - Influenza like illness [Recovered/Resolved]
  - Urinary tract infection [Recovered/Resolved]
  - Oedema peripheral [Unknown]
  - Aspartate aminotransferase increased [Recovered/Resolved]
  - Diarrhoea [Recovered/Resolved]
  - Blood creatine phosphokinase increased [Recovered/Resolved]
  - Leukopenia [Recovered/Resolved with Sequelae]
  - Vomiting [Not Recovered/Not Resolved]
  - Hypocalcaemia [Not Recovered/Not Resolved]
  - Influenza like illness [Recovering/Resolving]
  - Pyrexia [Unknown]
  - Epistaxis [Unknown]
  - Peripheral swelling [Unknown]

NARRATIVE: CASE EVENT DATE: 20170411
